FAERS Safety Report 5261583-5 (Version None)
Quarter: 2007Q1

REPORT INFORMATION
  Report Type: 
  Country: None (occurrence: None)
  Receive Date: 20070307
  Receipt Date: 20070222
  Transmission Date: 20070707
  Serious: Yes (Death)
  Sender: FDA-Public Use
  Company Number: 2007JP000729

PATIENT
  Age: 1 Month
  Sex: Male

DRUGS (5)
  1. PROGRAF [Suspect]
     Dosage: 0.02 MG, /D, IV DRIP
     Route: 041
     Dates: start: 20030129, end: 20030305
  2. MEROPEN (MEROPENEM) INJECTION [Concomitant]
  3. FLUCONAZOLE (FLUCONAZOLE) INJECTION [Concomitant]
  4. FUNGIZONE INJECTION [Concomitant]
  5. CARBENIN (BETAMIPRON, PANIPENEM) INJECTION [Concomitant]

REACTIONS (2)
  - THROMBOTIC MICROANGIOPATHY [None]
  - VENOOCCLUSIVE LIVER DISEASE [None]
